FAERS Safety Report 17338232 (Version 1)
Quarter: 2020Q1

REPORT INFORMATION
  Report Type: Spontaneous
  Country: BR (occurrence: BR)
  Receive Date: 20200129
  Receipt Date: 20200129
  Transmission Date: 20200409
  Serious: Yes (Other)
  Sender: FDA-Public Use
  Company Number: ALC2019BR003550

PATIENT
  Sex: Male

DRUGS (1)
  1. VITALUX PLUS OMEGA 3 [Suspect]
     Active Substance: MINERALS\OMEGA-3 FATTY ACIDS\VITAMINS
     Indication: EYE DISORDER PROPHYLAXIS
     Dosage: 1 DF, QD FOR ABOUT 30 DAYS (ONLY USED A BOX)
     Route: 048
     Dates: start: 2006, end: 2007

REACTIONS (2)
  - Cardiac disorder [Recovered/Resolved]
  - Acute myocardial infarction [Recovered/Resolved]

NARRATIVE: CASE EVENT DATE: 2010
